FAERS Safety Report 15233947 (Version 2)
Quarter: 2018Q3

REPORT INFORMATION
  Report Type: Spontaneous
  Country: BR (occurrence: BR)
  Receive Date: 20180802
  Receipt Date: 20180808
  Transmission Date: 20181010
  Serious: Yes (Other)
  Sender: FDA-Public Use
  Company Number: BR-009507513-1808BRA001065

PATIENT
  Sex: Female

DRUGS (3)
  1. ZERBAXA [Suspect]
     Active Substance: CEFTOLOZANE SULFATE\TAZOBACTAM SODIUM
     Indication: ENDOCARDITIS
     Dosage: FULL DOSE FOR ABDOMINAL INFECTION
     Dates: start: 2018
  2. ZERBAXA [Suspect]
     Active Substance: CEFTOLOZANE SULFATE\TAZOBACTAM SODIUM
     Indication: PSEUDOMONAS INFECTION
     Dosage: HALF OF THE FULL DOSE FOR ABDOMINAL INFECTION
     Dates: start: 201806, end: 2018
  3. ZERBAXA [Suspect]
     Active Substance: CEFTOLOZANE SULFATE\TAZOBACTAM SODIUM
     Indication: POSTOPERATIVE WOUND INFECTION

REACTIONS (5)
  - Enterobacter infection [Unknown]
  - Product use in unapproved indication [Unknown]
  - Pathogen resistance [Unknown]
  - Incorrect dose administered [Unknown]
  - Infection [Unknown]

NARRATIVE: CASE EVENT DATE: 2018
